FAERS Safety Report 5155406-2 (Version None)
Quarter: 2006Q4

REPORT INFORMATION
  Report Type: 
  Country: None (occurrence: None)
  Receive Date: 20061121
  Receipt Date: 20061109
  Transmission Date: 20070319
  Serious: Yes (Disabling)
  Sender: FDA-Public Use
  Company Number: JP-SANOFI-SYNTHELABO-A01200609777

PATIENT
  Sex: Female

DRUGS (8)
  1. MAGNESIUM OXIDE [Concomitant]
     Indication: CONSTIPATION
     Route: 048
     Dates: start: 20060801, end: 20060808
  2. JUZEN-TAIHO-TO [Concomitant]
     Indication: ANAEMIA
     Route: 048
     Dates: start: 20060720, end: 20060810
  3. DOMPERIDONE [Concomitant]
     Indication: VOMITING
     Route: 054
     Dates: start: 20060718, end: 20060718
  4. DECADRON [Concomitant]
     Indication: PROPHYLAXIS OF NAUSEA AND VOMITING
     Route: 042
     Dates: start: 20060130, end: 20060814
  5. GRANISETRON [Concomitant]
     Route: 042
     Dates: start: 20060130, end: 20060814
  6. FLUOROURACIL [Concomitant]
     Dosage: 600 MG BOLUS THEN 900 MG INFUSION D1-2
     Route: 042
     Dates: start: 20060814, end: 20060815
  7. LEUCOVORIN CALCIUM [Concomitant]
     Route: 042
     Dates: start: 20060814, end: 20060815
  8. OXALIPLATIN [Suspect]
     Indication: LARGE INTESTINE CARCINOMA
     Dosage: 130 MG/BODY IN INFUSION D1
     Route: 042
     Dates: start: 20060814, end: 20060814

REACTIONS (1)
  - TORTICOLLIS [None]
